FAERS Safety Report 14364153 (Version 3)
Quarter: 2018Q3

REPORT INFORMATION
  Report Type: Spontaneous
  Country: US (occurrence: US)
  Receive Date: 20180108
  Receipt Date: 20180810
  Transmission Date: 20181010
  Serious: Yes (Hospitalization, Other)
  Sender: FDA-Public Use
  Company Number: US-PFIZER INC-2018004517

PATIENT
  Age: 69 Year
  Sex: Female

DRUGS (36)
  1. WELLBUTRIN [Concomitant]
     Active Substance: BUPROPION HYDROCHLORIDE
     Indication: DEPRESSION
     Dosage: UNK
     Dates: start: 2014, end: 2016
  2. FLUOXETINE [Concomitant]
     Active Substance: FLUOXETINE HYDROCHLORIDE
     Indication: DEPRESSION
     Dosage: UNK
     Dates: start: 2002, end: 2003
  3. MYLANTA [Concomitant]
     Active Substance: ALUMINUM HYDROXIDE\DIMETHICONE\MAGNESIUM HYDROXIDE
     Dosage: UNK, 2X/DAY
     Dates: start: 1990
  4. ALBUTEROL. [Concomitant]
     Active Substance: ALBUTEROL
     Indication: CHRONIC OBSTRUCTIVE PULMONARY DISEASE
     Dosage: UNK
     Dates: start: 2006, end: 2016
  5. CYTOMEL [Concomitant]
     Active Substance: LIOTHYRONINE SODIUM
     Indication: HYPOTHYROIDISM
     Dosage: UNK
     Dates: start: 2014, end: 2016
  6. FLOMAX [Concomitant]
     Active Substance: TAMSULOSIN HYDROCHLORIDE
     Indication: URINARY RETENTION
     Dosage: UNK
     Dates: start: 2008
  7. CELEBREX [Concomitant]
     Active Substance: CELECOXIB
     Indication: PAIN
     Dosage: UNK
     Dates: start: 2007, end: 2017
  8. ZANTAC [Concomitant]
     Active Substance: RANITIDINE HYDROCHLORIDE
     Dosage: UNK
     Dates: start: 1990
  9. NEURONTIN [Concomitant]
     Active Substance: GABAPENTIN
     Indication: NEURALGIA
     Dosage: UNK
     Dates: start: 1989, end: 2011
  10. VITAMIN D2 [Concomitant]
     Active Substance: ERGOCALCIFEROL
     Indication: VITAMIN D DEFICIENCY
     Dosage: UNK
  11. TOPAMAX [Concomitant]
     Active Substance: TOPIRAMATE
     Indication: NEURALGIA
     Dosage: UNK
     Dates: end: 2010
  12. ZOLOFT [Concomitant]
     Active Substance: SERTRALINE HYDROCHLORIDE
     Indication: DEPRESSION
     Dosage: UNK
     Dates: start: 2009, end: 2010
  13. TUMS [Concomitant]
     Active Substance: CALCIUM CARBONATE
     Indication: DYSPEPSIA
     Dosage: 2X/DAY
     Dates: start: 1990
  14. TAGAMET HB [Concomitant]
     Active Substance: CIMETIDINE
     Dosage: UNK
     Dates: start: 1990
  15. ROLAIDS [Concomitant]
     Active Substance: CALCIUM CARBONATE\MAGNESIUM HYDROXIDE
     Dosage: UNK, 2X/DAY
     Dates: start: 1990
  16. PROTONIX [Suspect]
     Active Substance: PANTOPRAZOLE SODIUM
     Dosage: UNK
  17. SPIRIVA [Concomitant]
     Active Substance: TIOTROPIUM BROMIDE MONOHYDRATE
     Indication: CHRONIC OBSTRUCTIVE PULMONARY DISEASE
     Dosage: UNK
     Dates: start: 2007
  18. PEPCID [Concomitant]
     Active Substance: FAMOTIDINE
     Indication: DYSPEPSIA
     Dosage: UNK
     Dates: start: 1990
  19. TYLENOL [Concomitant]
     Active Substance: ACETAMINOPHEN
     Indication: HEADACHE
     Dosage: UNK
  20. ASPIRIN. [Concomitant]
     Active Substance: ASPIRIN
     Indication: HEADACHE
     Dosage: UNK
  21. MAALOX ANTACID [Concomitant]
     Active Substance: ALUMINUM HYDROXIDE\DIMETHICONE\MAGNESIUM HYDROXIDE
     Dosage: UNK, 2X/DAY
     Dates: start: 1990
  22. PANTOPRAZOLE [Suspect]
     Active Substance: PANTOPRAZOLE
     Indication: GASTROOESOPHAGEAL REFLUX DISEASE
     Dosage: UNK
     Dates: start: 201103
  23. OXYCONTIN [Concomitant]
     Active Substance: OXYCODONE HYDROCHLORIDE
     Indication: PAIN
     Dosage: UNK
     Dates: start: 2003, end: 2014
  24. ENDOCET [Concomitant]
     Active Substance: ACETAMINOPHEN\OXYCODONE HYDROCHLORIDE
     Indication: PAIN
     Dosage: UNK
     Dates: start: 2002, end: 2003
  25. PROTONIX [Suspect]
     Active Substance: PANTOPRAZOLE SODIUM
     Indication: GASTROOESOPHAGEAL REFLUX DISEASE
     Dosage: 40 MG, 2X/DAY
     Route: 048
     Dates: start: 200712, end: 201012
  26. CELEXA [Concomitant]
     Active Substance: CITALOPRAM HYDROBROMIDE
     Indication: DEPRESSION
     Dosage: UNK
     Dates: start: 2014, end: 2017
  27. PREMARIN [Concomitant]
     Active Substance: ESTROGENS, CONJUGATED
     Indication: HORMONE THERAPY
     Dosage: UNK
     Dates: start: 2002
  28. ALKA?SELTZER [Concomitant]
     Active Substance: ANHYDROUS CITRIC ACID\ASPIRIN\SODIUM BICARBONATE
     Dosage: UNK, 2X/DAY
     Dates: start: 1990
  29. PERCOCET [Concomitant]
     Active Substance: ACETAMINOPHEN\OXYCODONE HYDROCHLORIDE
     Indication: PAIN
     Dosage: UNK
     Dates: start: 2002
  30. XANAX [Concomitant]
     Active Substance: ALPRAZOLAM
     Indication: ANXIETY
     Dosage: UNK
     Dates: start: 2004, end: 2010
  31. PANTOPRAZOLE [Suspect]
     Active Substance: PANTOPRAZOLE
     Dosage: 40 MG, 2X/DAY
     Dates: start: 201507, end: 201609
  32. PREVACID [Suspect]
     Active Substance: LANSOPRAZOLE
     Indication: GASTROOESOPHAGEAL REFLUX DISEASE
     Dosage: 30 MG, 2X/DAY
     Route: 048
     Dates: start: 200408, end: 200710
  33. CELEXA [Concomitant]
     Active Substance: CITALOPRAM HYDROBROMIDE
     Indication: ANXIETY
  34. MELATONIN [Concomitant]
     Active Substance: MELATONIN
     Indication: SLEEP DISORDER
     Dosage: UNK
     Dates: start: 2015, end: 2016
  35. MIRAPEX [Concomitant]
     Active Substance: PRAMIPEXOLE DIHYDROCHLORIDE
     Indication: RESTLESS LEGS SYNDROME
     Dosage: UNK
     Dates: start: 2011, end: 2017
  36. VITAMIN D3 [Concomitant]
     Active Substance: CHOLECALCIFEROL
     Indication: VITAMIN D DEFICIENCY
     Dosage: UNK
     Dates: start: 2016

REACTIONS (2)
  - Chronic kidney disease [Not Recovered/Not Resolved]
  - Acute kidney injury [Unknown]

NARRATIVE: CASE EVENT DATE: 201411
